FAERS Safety Report 7893656-2 (Version None)
Quarter: 2011Q4

REPORT INFORMATION
  Report Type: 
  Country: None (occurrence: None)
  Receive Date: 20111104
  Receipt Date: 20111102
  Transmission Date: 20120403
  Serious: Yes (Other)
  Sender: FDA-Public Use
  Company Number: DE-GLAXOSMITHKLINE-D0073071A

PATIENT
  Sex: Male
  Weight: 82 kg

DRUGS (4)
  1. TROBALT [Suspect]
     Indication: EPILEPSY
     Dosage: 150MG THREE TIMES PER DAY
     Route: 048
     Dates: start: 20110812
  2. LAMOTRIGINE [Concomitant]
     Indication: EPILEPSY
     Dosage: 100MG TWICE PER DAY
     Route: 048
  3. MIRTAZAPINE [Concomitant]
     Indication: DEPRESSION
     Dosage: 15MG AT NIGHT
     Route: 048
  4. KEPPRA [Concomitant]
     Indication: EPILEPSY
     Dosage: 1500MG PER DAY
     Route: 048

REACTIONS (10)
  - THOUGHT BLOCKING [None]
  - ATAXIA [None]
  - DIZZINESS [None]
  - CHEST PAIN [None]
  - HEADACHE [None]
  - DISTURBANCE IN ATTENTION [None]
  - ANTICONVULSANT DRUG LEVEL ABOVE THERAPEUTIC [None]
  - MEMORY IMPAIRMENT [None]
  - ACCIDENTAL OVERDOSE [None]
  - VERTIGO [None]
